FAERS Safety Report 4600420-6 (Version None)
Quarter: 2005Q1

REPORT INFORMATION
  Report Type: 
  Country: None (occurrence: None)
  Receive Date: 20050127
  Receipt Date: 20041104
  Transmission Date: 20050727
  Serious: No
  Sender: FDA-Public Use
  Company Number: USA041183285

PATIENT
  Age: 10 Year
  Sex: Male

DRUGS (2)
  1. STRATTERA [Suspect]
     Indication: ATTENTION DEFICIT/HYPERACTIVITY DISORDER
     Dosage: 25 MG/D AT BEDTIME
     Dates: start: 20041103
  2. ADDERALL 10 [Concomitant]

REACTIONS (2)
  - DISTURBANCE IN ATTENTION [None]
  - PSYCHOMOTOR HYPERACTIVITY [None]
